FAERS Safety Report 6422998-2 (Version None)
Quarter: 2009Q4

REPORT INFORMATION
  Report Type: 
  Country: None (occurrence: None)
  Receive Date: 20091102
  Receipt Date: 20091020
  Transmission Date: 20100525
  Serious: Yes (Death, Disabling)
  Sender: FDA-Public Use
  Company Number: DK-BAYER-200936765GPV

PATIENT
  Age: 74 Year

DRUGS (11)
  1. GADOLINIUM BASED CONTRAST [Suspect]
     Indication: SCAN WITH CONTRAST
     Route: 042
     Dates: start: 20040421, end: 20040421
  2. NEORECORMON [Concomitant]
  3. VENOFER [Concomitant]
  4. PLENDIL [Concomitant]
  5. MAGNYL/ ASA [Concomitant]
  6. DIURAL [FUROSEMIDE] [Concomitant]
  7. HEXAPRESS [Concomitant]
     Route: 048
  8. ZYRTEC [Concomitant]
     Route: 048
  9. PHOS-EX [Concomitant]
     Route: 048
  10. B-COMBIN [Concomitant]
  11. LACTULOSE [Concomitant]

REACTIONS (10)
  - ARTHRALGIA [None]
  - DEATH [None]
  - DIZZINESS [None]
  - HEADACHE [None]
  - MOBILITY DECREASED [None]
  - MUSCULAR WEAKNESS [None]
  - NEPHROGENIC SYSTEMIC FIBROSIS [None]
  - PRURITUS [None]
  - RASH [None]
  - VOMITING [None]
